FAERS Safety Report 4388332-7 (Version None)
Quarter: 2004Q2

REPORT INFORMATION
  Report Type: 
  Country: None (occurrence: None)
  Receive Date: 20040625
  Receipt Date: 20040617
  Transmission Date: 20050107
  Serious: Yes (Death, Hospitalization)
  Sender: FDA-Public Use
  Company Number: HQWYE067621MAY04

PATIENT
  Age: 77 Year
  Sex: Male

DRUGS (10)
  1. AMIODARONE HCL [Suspect]
     Indication: VENTRICULAR TACHYCARDIA
     Dosage: 100 MG 1X PER 1 DAY ORAL
     Route: 048
     Dates: start: 20000401, end: 20040506
  2. ALDACTONE [Concomitant]
  3. SELBEX (TEPRENONE) [Concomitant]
  4. BAYASPIRINA (ACETYLSALICYLIC ACID) [Concomitant]
  5. LASIX [Concomitant]
  6. PRAVASTATIN SODIUM [Concomitant]
  7. NU-LOTAN (LOSARTAN POTASSIUM) [Concomitant]
  8. WARFARIN SODIUM [Concomitant]
  9. TORSEMIDE (TORASEMIDE) [Concomitant]
  10. MARZULENE S (LEVOGLUTAMIDE/SODIUM GUALENATE) [Concomitant]

REACTIONS (2)
  - DISSEMINATED INTRAVASCULAR COAGULATION [None]
  - INTERSTITIAL LUNG DISEASE [None]
